FAERS Safety Report 10342993 (Version 3)
Quarter: 2014Q4

REPORT INFORMATION
  Report Type: Spontaneous
  Country: JP (occurrence: JP)
  Receive Date: 20140725
  Receipt Date: 20141013
  Transmission Date: 20150528
  Serious: Yes (Death)
  Sender: FDA-Public Use
  Company Number: PHJP2014JP000905

PATIENT
  Age: 26 Year
  Sex: Female

DRUGS (2)
  1. REGITIN INJECTION 10MG [Suspect]
     Active Substance: PHENTOLAMINE
     Indication: PHAEOCHROMOCYTOMA MALIGNANT
     Dosage: 310 MG, UNK
     Route: 041
     Dates: start: 201406
  2. SANDOSTATIN [Concomitant]
     Active Substance: OCTREOTIDE ACETATE
     Indication: PRODUCT USED FOR UNKNOWN INDICATION
     Dosage: UNK
     Route: 058
     Dates: start: 20140716

REACTIONS (4)
  - Phaeochromocytoma malignant [Fatal]
  - Malignant neoplasm progression [Fatal]
  - Phlebitis [Recovered/Resolved]
  - General physical health deterioration [Unknown]

NARRATIVE: CASE EVENT DATE: 20140718
